FAERS Safety Report 21938766 (Version 1)
Quarter: 2023Q1

REPORT INFORMATION
  Report Type: Report from Study
  Country: US (occurrence: US)
  Receive Date: 20230201
  Receipt Date: 20230201
  Transmission Date: 20230418
  Serious: Yes (Death, Other)
  Sender: FDA-Public Use
  Company Number: US-EXELIXIS-CABO-22050459

PATIENT
  Age: 62 Year
  Sex: Female

DRUGS (17)
  1. CABOMETYX [Suspect]
     Active Substance: CABOZANTINIB S-MALATE
     Indication: Clear cell renal cell carcinoma
     Dosage: 60 MG, QD
     Route: 048
     Dates: start: 20220305, end: 20220429
  2. CABOMETYX [Suspect]
     Active Substance: CABOZANTINIB S-MALATE
     Indication: Metastases to bone
  3. CABOMETYX [Suspect]
     Active Substance: CABOZANTINIB S-MALATE
     Indication: Metastases to lung
  4. NORVASC [Concomitant]
     Active Substance: AMLODIPINE BESYLATE
  5. DECADRON [Concomitant]
     Active Substance: DEXAMETHASONE
  6. FLONASE [Concomitant]
     Active Substance: FLUTICASONE PROPIONATE
  7. BENADRYL [Concomitant]
     Active Substance: DIPHENHYDRAMINE HYDROCHLORIDE
  8. LEVOTHYROXINE [Concomitant]
     Active Substance: LEVOTHYROXINE
  9. LIDODERM [Concomitant]
     Active Substance: LIDOCAINE
  10. ELOCON [Concomitant]
     Active Substance: MOMETASONE FUROATE
  11. PRILOSEC [Concomitant]
     Active Substance: OMEPRAZOLE MAGNESIUM
  12. MIRALAX [Concomitant]
     Active Substance: POLYETHYLENE GLYCOL 3350
  13. ULTRAM [Concomitant]
     Active Substance: TRAMADOL HYDROCHLORIDE
  14. VALIUM [Concomitant]
     Active Substance: DIAZEPAM
  15. GENERIC DME [Concomitant]
  16. DENOSUMAB [Concomitant]
     Active Substance: DENOSUMAB
  17. SYNTHROID [Concomitant]
     Active Substance: LEVOTHYROXINE SODIUM
     Indication: Hypothyroidism

REACTIONS (25)
  - Pulmonary embolism [Unknown]
  - Death [Fatal]
  - Hypervolaemia [Unknown]
  - Illness [Unknown]
  - Pallor [Unknown]
  - Electrolyte depletion [Unknown]
  - Full blood count abnormal [Unknown]
  - Metabolic function test abnormal [Unknown]
  - International normalised ratio abnormal [Unknown]
  - Prothrombin time abnormal [Unknown]
  - Left ventricular hypertrophy [Unknown]
  - Pericardial effusion [Unknown]
  - Blood pressure decreased [Recovered/Resolved]
  - Oedema peripheral [Unknown]
  - Gastrointestinal motility disorder [Unknown]
  - Haematemesis [Unknown]
  - Vomiting [Unknown]
  - Weight decreased [Unknown]
  - Nausea [Unknown]
  - Deep vein thrombosis [Unknown]
  - Dizziness [Unknown]
  - Asthenia [Unknown]
  - Metastases to kidney [Unknown]
  - Metastases to liver [Unknown]
  - Metastases to muscle [Unknown]

NARRATIVE: CASE EVENT DATE: 20220509
